FAERS Safety Report 17146848 (Version 1)
Quarter: 2019Q4

REPORT INFORMATION
  Report Type: Spontaneous
  Country: DE (occurrence: DE)
  Receive Date: 20191212
  Receipt Date: 20191212
  Transmission Date: 20200122
  Serious: Yes (Hospitalization)
  Sender: FDA-Public Use
  Company Number: DE-MYLANLABS-2019M1122145

PATIENT
  Age: 87 Year
  Sex: Female

DRUGS (10)
  1. DIGITOXIN [Concomitant]
     Active Substance: DIGITOXIN
     Dosage: 0.07 MILLIGRAM 1-0-0-0
  2. RISPERIDON [Concomitant]
     Active Substance: RISPERIDONE
     Dosage: 1 MILLIGRAM 1-0-0-0
  3. MIRTAZAPIN [Concomitant]
     Active Substance: MIRTAZAPINE
     Dosage: 15 MILLIGRAM 0-0-1-0
  4. ALLOPURINOL. [Concomitant]
     Active Substance: ALLOPURINOL
     Dosage: 100 MILLIGRAM 1-0-0-0
  5. METOPROLOL. [Suspect]
     Active Substance: METOPROLOL
     Indication: PRODUCT USED FOR UNKNOWN INDICATION
     Dosage: 95 MILLIGRAM  1-0-0-1
  6. FUROSEMIDE. [Concomitant]
     Active Substance: FUROSEMIDE
     Dosage: 40 MG,  2-1-0-0
  7. XIPAMID [Concomitant]
     Active Substance: XIPAMIDE
     Dosage: 10 MILLIGRAM, 1-0-0-0
  8. APIXABAN [Concomitant]
     Active Substance: APIXABAN
     Dosage: 2.5 MILLIGRAM 1-0-1-0
  9. REPAGLINIDE. [Concomitant]
     Active Substance: REPAGLINIDE
     Dosage: 1 MILLIGRAM 1-1-1-0
  10. KALIUM                             /00031401/ [Concomitant]
     Active Substance: POTASSIUM CHLORIDE
     Dosage: NK MG, 1-0-0-0, BRAUSETABLETTEN

REACTIONS (3)
  - Dyspnoea [Unknown]
  - Condition aggravated [Unknown]
  - Product prescribing error [Unknown]
